FAERS Safety Report 11116376 (Version 1)
Quarter: 2015Q2

REPORT INFORMATION
  Report Type: Spontaneous
  Country: NL (occurrence: NL)
  Receive Date: 20150515
  Receipt Date: 20150515
  Transmission Date: 20150821
  Serious: Yes (Hospitalization)
  Sender: FDA-Public Use
  Company Number: NL-TEVA-562576ISR

PATIENT
  Age: 63 Year
  Sex: Male
  Weight: 72 kg

DRUGS (15)
  1. LOPERAMIDE CAPSULE 2MG [Concomitant]
     Dosage: 6 MILLIGRAM DAILY; 3 TIMES DAILY ONE PIECE
     Route: 048
  2. MAGNESIUMSULFAAT INFVLST 100MG/ML [Concomitant]
     Dosage: 1000 MILLIGRAM DAILY; TWICE DAILY 500 MG
     Route: 042
  3. CLEMASTINE INJVLST 1MG/ML [Concomitant]
     Dosage: 2 MILLIGRAM DAILY; ONCE DAILY 2 MG
     Route: 042
  4. FRAXIPARINE INJVLST 9500IE/ML WWSP 0,3ML [Concomitant]
     Dosage: 2850 IU (INTERNATIONAL UNIT) DAILY; ONCE DAILY 2850 IU
     Route: 058
  5. TAMSULOSINE TABLET MGA 0,4MG [Concomitant]
     Dosage: .4 MILLIGRAM DAILY; ONCE DAILY ONE
     Route: 048
  6. PARACETAMOL TABLET  500MG [Concomitant]
     Active Substance: ACETAMINOPHEN
     Dosage: 3000 MILLIGRAM DAILY; 3 TIMES DAILY 1000 MG
     Route: 048
  7. KALIUMCHLORIDE INFCONC  74,6MG/ML (1MMOL/ML) [Concomitant]
     Dosage: ACCORDING TO AGREEMENT 80 MMOL/24 HOURS, CONCENTRATE FOR SOLUTION FOR INFUSION
     Route: 042
  8. RANITIDINE INJVLST 25MG/ML [Concomitant]
     Dosage: 50 MILLIGRAM DAILY; ONCE DAILY 50 MG
     Route: 042
  9. PACLITAXEL. [Suspect]
     Active Substance: PACLITAXEL
     Indication: OESOPHAGEAL CARCINOMA
     Dosage: ONCE A WEEK 90 MG, FOR 6 WEEKS
     Route: 042
     Dates: start: 20150318
  10. MICONAZOL CREME 20MG/G [Concomitant]
     Dosage: 2 DOSAGE FORMS DAILY; TWICE DAILY
     Route: 003
  11. KALIUMCHLORIDE DRANK 75MG/ML (1MMOL/ML) [Concomitant]
     Dosage: 60 ML DAILY; TWICE DAILY 30 ML
     Route: 048
  12. IPRATROPIUM VERNEVELVLST 250UG/ML [Concomitant]
     Dosage: 2000 MICROGRAM DAILY; 4 TIMES DAILY 500 MCG
     Route: 055
  13. PANTOPRAZOL TABLET MSR 40MG [Concomitant]
     Active Substance: PANTOPRAZOLE SODIUM
     Dosage: ONCE DAILY 40 MG, GASTRO-RESISTANT TABLET
     Route: 048
  14. DEXAMETHASON INJVLST 20MG/ML (BASE) [Concomitant]
     Dosage: ONCE DAILY 8 MG
     Route: 042
  15. GRANISETRON INJVLST 1MG/ML [Concomitant]
     Dosage: 1 MILLIGRAM DAILY; ONCE DAILY 1 MG
     Route: 042

REACTIONS (1)
  - Pneumatosis intestinalis [Recovering/Resolving]

NARRATIVE: CASE EVENT DATE: 20150402
